FAERS Safety Report 8529766 (Version 3)
Quarter: 2012Q4

REPORT INFORMATION
  Report Type: 
  Country: US (occurrence: US)
  Receive Date: 20120425
  Receipt Date: 20120910
  Transmission Date: 20130627
  Serious: No
  Sender: FDA-Public Use
  Company Number: US-BIOGENIDEC-2012BI013322

PATIENT
  Age: 33 Year
  Sex: Male

DRUGS (1)
  1. TYSABRI [Suspect]
     Indication: MULTIPLE SCLEROSIS
     Route: 042
     Dates: start: 20120405, end: 20120405

REACTIONS (4)
  - Oedema peripheral [Unknown]
  - Hypoaesthesia [Not Recovered/Not Resolved]
  - Discomfort [Unknown]
  - Arthralgia [Unknown]
